FAERS Safety Report 7654368-3 (Version None)
Quarter: 2011Q3

REPORT INFORMATION
  Report Type: 
  Country: None (occurrence: None)
  Receive Date: 20110728
  Receipt Date: 20110712
  Transmission Date: 20111222
  Serious: Yes (Hospitalization, Other)
  Sender: FDA-Public Use
  Company Number: CL-330-2011

PATIENT
  Age: 80 Year
  Sex: Male

DRUGS (1)
  1. AMIODARONE HCL [Suspect]
     Indication: ATRIAL FIBRILLATION
     Dosage: INTRAVENOUS
     Route: 042

REACTIONS (10)
  - ACUTE RESPIRATORY FAILURE [None]
  - HYPOTHYROIDISM [None]
  - SEPSIS [None]
  - RENAL FAILURE ACUTE [None]
  - ATRIAL FIBRILLATION [None]
  - POST PROCEDURAL COMPLICATION [None]
  - VENTRICULAR TACHYCARDIA [None]
  - HEPARIN-INDUCED THROMBOCYTOPENIA [None]
  - UNRESPONSIVE TO STIMULI [None]
  - HAEMORRHAGE INTRACRANIAL [None]
